FAERS Safety Report 5210890-0 (Version None)
Quarter: 2006Q4

REPORT INFORMATION
  Report Type: 
  Country: None (occurrence: None)
  Receive Date: 20061102
  Receipt Date: 20060725
  Transmission Date: 20070319
  Serious: Yes (Other)
  Sender: FDA-Public Use
  Company Number: 29288

PATIENT
  Age: 36 Year
  Sex: Female
  Weight: 64.8644 kg

DRUGS (2)
  1. METHOTREXATE [Suspect]
     Indication: ECTOPIC PREGNANCY
     Dosage: 75MG/IM-2 TRACK METHOD
     Dates: start: 20060714
  2. METHOTREXATE [Suspect]
     Indication: ECTOPIC PREGNANCY
     Dosage: 89MG/IM-2 TRACK METHOD
     Dates: start: 20060721

REACTIONS (1)
  - DRUG INEFFECTIVE [None]
